FAERS Safety Report 5005646-8 (Version None)
Quarter: 2006Q1

REPORT INFORMATION
  Report Type: 
  Country: None (occurrence: None)
  Receive Date: 20060317
  Receipt Date: 20060117
  Transmission Date: 20060701
  Serious: Yes (Other)
  Sender: FDA-Public Use
  Company Number: US-JNJFOC-20060104006

PATIENT
  Age: 21 Year
  Sex: Female

DRUGS (7)
  1. ORTHO EVRA [Suspect]
     Indication: DRUG USE FOR UNKNOWN INDICATION
     Dosage: TRANSDERMAL
     Route: 062
  2. ICA-17043 VS PLACEBO (ALL OTHER THERAPEUTIC PRODUCTS) [Concomitant]
  3. ROXICET [Concomitant]
  4. HYDROXYUREA [Concomitant]
  5. FOLIC ACID [Concomitant]
  6. IBUPROFEN [Concomitant]
  7. OXYCONTIN [Concomitant]

REACTIONS (4)
  - ABDOMINAL PAIN [None]
  - DRUG EXPOSURE DURING PREGNANCY [None]
  - METRORRHAGIA [None]
  - UNINTENDED PREGNANCY [None]
